FAERS Safety Report 23476179 (Version 1)
Quarter: 2024Q1

REPORT INFORMATION
  Report Type: Report from Study
  Country: US (occurrence: US)
  Receive Date: 20240204
  Receipt Date: 20240204
  Transmission Date: 20240409
  Serious: No
  Sender: FDA-Public Use
  Company Number: US-EXELIXIS-CABO-23061884

PATIENT
  Age: 63 Year
  Sex: Male

DRUGS (1)
  1. CABOMETYX [Suspect]
     Active Substance: CABOZANTINIB S-MALATE
     Indication: Renal cancer
     Dosage: 40 MG, QD
     Route: 048
     Dates: start: 20230216

REACTIONS (10)
  - Blister [Recovering/Resolving]
  - Rhinorrhoea [Not Recovered/Not Resolved]
  - Sneezing [Not Recovered/Not Resolved]
  - Skin ulcer [Unknown]
  - Glossodynia [Unknown]
  - Fatigue [Recovering/Resolving]
  - Weight decreased [Not Recovered/Not Resolved]
  - Stomatitis [Recovering/Resolving]
  - Pain in extremity [Not Recovered/Not Resolved]
  - Dry skin [Unknown]

NARRATIVE: CASE EVENT DATE: 20230220
